FAERS Safety Report 11629573 (Version 1)
Quarter: 2015Q4

REPORT INFORMATION
  Report Type: Report from Study
  Country: US (occurrence: US)
  Receive Date: 20151014
  Receipt Date: 20151014
  Transmission Date: 20160304
  Serious: Yes (Other)
  Sender: FDA-Public Use
  Company Number: US-ELI_LILLY_AND_COMPANY-US201506003065

PATIENT
  Sex: Female
  Weight: 58.05 kg

DRUGS (2)
  1. FORTEO [Suspect]
     Active Substance: TERIPARATIDE
     Indication: OSTEOPOROSIS
     Dosage: UNK, QD
     Route: 058
     Dates: start: 201502
  2. FORTEO [Suspect]
     Active Substance: TERIPARATIDE
     Dosage: 0.08 ML, QD
     Route: 058
     Dates: start: 20141125, end: 20150605

REACTIONS (3)
  - Supraventricular tachycardia [Recovered/Resolved]
  - Heart rate irregular [Unknown]
  - Heart rate increased [Unknown]
